FAERS Safety Report 8493404-1 (Version None)
Quarter: 2012Q3

REPORT INFORMATION
  Report Type: 
  Country: None (occurrence: None)
  Receive Date: 20120706
  Receipt Date: 20120628
  Transmission Date: 20120928
  Serious: Yes (Hospitalization)
  Sender: FDA-Public Use
  Company Number: JP-JNJFOC-20120701952

PATIENT
  Age: 8 Decade
  Sex: Female

DRUGS (2)
  1. ALL OTHER THERAPEUTIC AGENTS [Concomitant]
     Route: 048
     Dates: start: 20120601
  2. SIMPONI [Suspect]
     Indication: RHEUMATOID ARTHRITIS
     Route: 058
     Dates: start: 20120501, end: 20120601

REACTIONS (2)
  - PNEUMONIA [None]
  - HEPATIC FUNCTION ABNORMAL [None]
